FAERS Safety Report 4967878-4 (Version None)
Quarter: 2006Q2

REPORT INFORMATION
  Report Type: 
  Country: None (occurrence: None)
  Receive Date: 20060410
  Receipt Date: 20060330
  Transmission Date: 20061013
  Serious: Yes (Other)
  Sender: FDA-Public Use
  Company Number: PHRM2006FR01246

PATIENT
  Sex: Female

DRUGS (1)
  1. FEMARA [Suspect]
     Route: 048

REACTIONS (1)
  - VITREOUS DETACHMENT [None]
